FAERS Safety Report 5689336-4 (Version None)
Quarter: 2008Q1

REPORT INFORMATION
  Report Type: 
  Country: None (occurrence: None)
  Receive Date: 20080331
  Receipt Date: 20080320
  Transmission Date: 20080703
  Serious: Yes (Hospitalization)
  Sender: FDA-Public Use
  Company Number: DE-PFIZER INC-2008025437

PATIENT
  Age: 80 Year
  Sex: Male

DRUGS (2)
  1. CABASERIL [Suspect]
     Indication: PARKINSON'S DISEASE
     Route: 048
  2. ALL OTHER THERAPEUTIC PRODUCTS [Concomitant]

REACTIONS (1)
  - HAEMOLYSIS [None]
